FAERS Safety Report 23531863 (Version 2)
Quarter: 2024Q1

REPORT INFORMATION
  Report Type: Spontaneous
  Country: KG (occurrence: None)
  Receive Date: 20240216
  Receipt Date: 20240316
  Transmission Date: 20240410
  Serious: Yes (Hospitalization)
  Sender: FDA-Public Use
  Company Number: KG-ROCHE-3508999

PATIENT
  Age: 14 Year
  Sex: Female
  Weight: 40 kg

DRUGS (1)
  1. RISDIPLAM [Suspect]
     Active Substance: RISDIPLAM
     Indication: Spinal muscular atrophy
     Dosage: 6.6 ML
     Route: 048
     Dates: start: 202303

REACTIONS (1)
  - Haemorrhagic vasculitis [Recovered/Resolved]

NARRATIVE: CASE EVENT DATE: 20240115
